FAERS Safety Report 14334659 (Version 5)
Quarter: 2018Q1

REPORT INFORMATION
  Report Type: Spontaneous
  Country: US (occurrence: US)
  Receive Date: 20171228
  Receipt Date: 20180329
  Transmission Date: 20180509
  Serious: No
  Sender: FDA-Public Use
  Company Number: US-STRONGBRIDGE BIOPHARMA-2017-STR-000211

PATIENT
  Age: 43 Year
  Sex: Female

DRUGS (4)
  1. KEVEYIS [Suspect]
     Active Substance: DICHLORPHENAMIDE
     Indication: PRODUCT USED FOR UNKNOWN INDICATION
     Dosage: UNK UNK, QD
     Route: 048
     Dates: start: 20171220
  2. KEVEYIS [Suspect]
     Active Substance: DICHLORPHENAMIDE
     Dosage: FULL DOSE AS PRESCRIBED
     Route: 048
     Dates: start: 201712
  3. KEVEYIS [Suspect]
     Active Substance: DICHLORPHENAMIDE
     Dosage: 1/2 TABLET ONCE DAILY IN THE MORNING
     Route: 048
     Dates: start: 20180302
  4. KEVEYIS [Suspect]
     Active Substance: DICHLORPHENAMIDE
     Dosage: HALF PRESCRIBED DOSE
     Route: 048

REACTIONS (8)
  - Dizziness [Not Recovered/Not Resolved]
  - Chest discomfort [Recovered/Resolved]
  - Product use issue [Unknown]
  - Sinusitis [Unknown]
  - Laryngitis [Unknown]
  - Dyspnoea [Recovered/Resolved]
  - Drug dose omission [Unknown]
  - Blood potassium decreased [Unknown]

NARRATIVE: CASE EVENT DATE: 20171222
